FAERS Safety Report 7772747-0 (Version None)
Quarter: 2011Q3

REPORT INFORMATION
  Report Type: 
  Country: None (occurrence: None)
  Receive Date: 20110922
  Receipt Date: 20110427
  Transmission Date: 20111222
  Serious: No
  Sender: FDA-Public Use
  Company Number: US-ASTRAZENECA-2011SE24923

PATIENT
  Age: 708 Month
  Sex: Female
  Weight: 64.4 kg

DRUGS (7)
  1. ASPIRIN [Concomitant]
  2. SEROQUEL XR [Suspect]
     Indication: BIPOLAR DISORDER
     Route: 048
     Dates: start: 20030101, end: 20110401
  3. NUVIGIL [Concomitant]
     Indication: ATTENTION DEFICIT/HYPERACTIVITY DISORDER
  4. PROZAC [Concomitant]
  5. ZIAC [Concomitant]
  6. LEVOTHYROXINE SODIUM [Concomitant]
  7. GLUCOPHAG [Concomitant]

REACTIONS (10)
  - DECREASED APPETITE [None]
  - MANIA [None]
  - WEIGHT DECREASED [None]
  - MEMORY IMPAIRMENT [None]
  - THERAPEUTIC RESPONSE UNEXPECTED [None]
  - VISUAL IMPAIRMENT [None]
  - IMMOBILE [None]
  - DEPRESSION [None]
  - DIABETES MELLITUS [None]
  - DRUG DOSE OMISSION [None]
